FAERS Safety Report 7544084-0 (Version None)
Quarter: 2011Q2

REPORT INFORMATION
  Report Type: 
  Country: None (occurrence: None)
  Receive Date: 20110613
  Receipt Date: 20060119
  Transmission Date: 20111010
  Serious: Yes (Hospitalization)
  Sender: FDA-Public Use
  Company Number: PHMT2006CA00510

PATIENT
  Sex: Female

DRUGS (4)
  1. ALTACE [Concomitant]
  2. LIPITOR [Concomitant]
  3. APO-FUROSEMIDE [Concomitant]
  4. SANDOSTATIN LAR [Suspect]
     Indication: CARCINOID SYNDROME
     Dosage: 20 MG, QMO
     Dates: start: 20050727

REACTIONS (2)
  - FALL [None]
  - TIBIA FRACTURE [None]
